FAERS Safety Report 12530360 (Version 1)
Quarter: 2016Q3

REPORT INFORMATION
  Report Type: Spontaneous
  Country: US (occurrence: None)
  Receive Date: 20160705
  Receipt Date: 20160705
  Transmission Date: 20161109
  Serious: Yes (Life-Threatening, Hospitalization)
  Sender: FDA-Public Use
  Company Number: None

PATIENT
  Age: 61 Year
  Sex: Female
  Weight: 78.93 kg

DRUGS (7)
  1. PROBIOTIC [Concomitant]
     Active Substance: PROBIOTICS NOS
  2. LEVOFLOXACIN. [Suspect]
     Active Substance: LEVOFLOXACIN
     Indication: SINUSITIS
     Dates: start: 20160601, end: 20160603
  3. LISINOPRIL-HCTZ [Concomitant]
     Active Substance: HYDROCHLOROTHIAZIDE\LISINOPRIL
  4. LEVOFLOXACIN. [Suspect]
     Active Substance: LEVOFLOXACIN
     Indication: UPPER RESPIRATORY TRACT INFECTION
     Dates: start: 20160601, end: 20160603
  5. PREDNISONE, 20 MG WATSON [Suspect]
     Active Substance: PREDNISONE
     Indication: UPPER RESPIRATORY TRACT INFECTION
     Route: 048
     Dates: start: 20160601, end: 20160603
  6. WOMENS MULTI-VITAMIN [Concomitant]
  7. PREDNISONE, 20 MG WATSON [Suspect]
     Active Substance: PREDNISONE
     Indication: SINUSITIS
     Route: 048
     Dates: start: 20160601, end: 20160603

REACTIONS (7)
  - Loss of consciousness [None]
  - Drug interaction [None]
  - Seizure [None]
  - Blood sodium decreased [None]
  - Decreased appetite [None]
  - Glossodynia [None]
  - Agitation [None]

NARRATIVE: CASE EVENT DATE: 20160603
